FAERS Safety Report 15167000 (Version 1)
Quarter: 2018Q3

REPORT INFORMATION
  Report Type: Spontaneous
  Country: US (occurrence: US)
  Receive Date: 20180621
  Receipt Date: 20180621
  Transmission Date: 20181010
  Serious: Yes (Death)
  Sender: FDA-Public Use
  Company Number: None

PATIENT
  Age: 61 Year
  Sex: Female
  Weight: 67.95 kg

DRUGS (6)
  1. L?THYROXINE [Concomitant]
     Active Substance: LEVOTHYROXINE
  2. FIBER [Concomitant]
     Active Substance: PSYLLIUM HUSK
  3. RALOXIFENE HCL [Suspect]
     Active Substance: RALOXIFENE
     Indication: OSTEOPOROSIS
     Dosage: ?          QUANTITY:90 TABLET(S);?
     Route: 048
     Dates: start: 20151115, end: 20180110
  4. PREDNISONE. [Concomitant]
     Active Substance: PREDNISONE
  5. VITAMIN D [Concomitant]
     Active Substance: CHOLECALCIFEROL
  6. CALCIUM [Concomitant]
     Active Substance: CALCIUM

REACTIONS (10)
  - Pyrexia [None]
  - Pleuritic pain [None]
  - Product quality issue [None]
  - Dyspnoea [None]
  - Malaise [None]
  - Haemoptysis [None]
  - Pulmonary infarction [None]
  - Condition aggravated [None]
  - Syncope [None]
  - Pulmonary embolism [None]

NARRATIVE: CASE EVENT DATE: 20180101
